FAERS Safety Report 7666980-6 (Version None)
Quarter: 2011Q3

REPORT INFORMATION
  Report Type: 
  Country: None (occurrence: None)
  Receive Date: 20110806
  Receipt Date: 20110720
  Transmission Date: 20111222
  Serious: No
  Sender: FDA-Public Use
  Company Number: US-ABBOTT-11P-163-0840639-00

PATIENT
  Sex: Female
  Weight: 99.88 kg

DRUGS (8)
  1. NIASPAN [Suspect]
     Indication: BLOOD CHOLESTEROL INCREASED
     Dates: start: 20110616
  2. ZOLOFT [Concomitant]
     Indication: BALANCE DISORDER
  3. CLONAZEPAM [Concomitant]
     Indication: PRODUCT USED FOR UNKNOWN INDICATION
  4. ASPIRIN [Concomitant]
     Indication: CARDIOVASCULAR EVENT PROPHYLAXIS
  5. OMNARIS [Concomitant]
     Indication: HYPERSENSITIVITY
     Route: 045
  6. LOVAZA [Concomitant]
     Indication: BLOOD CHOLESTEROL INCREASED
  7. SUDAFED 12 HOUR [Concomitant]
     Indication: HYPERSENSITIVITY
  8. XYZAL [Concomitant]
     Indication: HYPERSENSITIVITY

REACTIONS (4)
  - FEELING OF BODY TEMPERATURE CHANGE [None]
  - FLUSHING [None]
  - NAUSEA [None]
  - BACK PAIN [None]
